FAERS Safety Report 7647090-0 (Version None)
Quarter: 2011Q3

REPORT INFORMATION
  Report Type: 
  Country: None (occurrence: None)
  Receive Date: 20110801
  Receipt Date: 20110510
  Transmission Date: 20111222
  Serious: Yes (Hospitalization)
  Sender: FDA-Public Use
  Company Number: AU-JNJFOC-20110504779

PATIENT
  Sex: Male

DRUGS (3)
  1. INVEGA SUSTENNA [Suspect]
     Indication: SCHIZOPHRENIA
     Dosage: ON DAY 8
     Route: 030
  2. INVEGA SUSTENNA [Suspect]
     Dosage: DAY 22
     Route: 030
  3. INVEGA SUSTENNA [Suspect]
     Route: 030

REACTIONS (6)
  - URTICARIA [None]
  - PRODUCT QUALITY ISSUE [None]
  - DELUSION [None]
  - OEDEMA PERIPHERAL [None]
  - PRURITUS [None]
  - MALAISE [None]
